FAERS Safety Report 17016112 (Version 2)
Quarter: 2020Q3

REPORT INFORMATION
  Report Type: Report from Study
  Country: US (occurrence: US)
  Receive Date: 20191111
  Receipt Date: 20200803
  Transmission Date: 20201102
  Serious: Yes (Other)
  Sender: FDA-Public Use
  Company Number: PHHY2018US009182

PATIENT
  Age: 57 Year
  Sex: Female

DRUGS (1)
  1. GILENYA [Suspect]
     Active Substance: FINGOLIMOD HYDROCHLORIDE
     Indication: MULTIPLE SCLEROSIS
     Dosage: UNK, QD
     Route: 048

REACTIONS (17)
  - Lymphocyte count decreased [Not Recovered/Not Resolved]
  - Stress [Not Recovered/Not Resolved]
  - Contusion [Recovered/Resolved]
  - Urinary incontinence [Not Recovered/Not Resolved]
  - Anxiety [Not Recovered/Not Resolved]
  - Mental impairment [Not Recovered/Not Resolved]
  - Retinal disorder [Not Recovered/Not Resolved]
  - Pain [Recovered/Resolved]
  - Grip strength decreased [Recovered/Resolved]
  - Balance disorder [Not Recovered/Not Resolved]
  - Sleep disorder [Not Recovered/Not Resolved]
  - Disturbance in attention [Not Recovered/Not Resolved]
  - Blood pressure increased [Not Recovered/Not Resolved]
  - Palpitations [Unknown]
  - Pressure of speech [Unknown]
  - Alexithymia [Not Recovered/Not Resolved]
  - Cough [Recovered/Resolved]

NARRATIVE: CASE EVENT DATE: 20171204
